FAERS Safety Report 9249892 (Version 1)
Quarter: 2013Q2

REPORT INFORMATION
  Report Type: Spontaneous
  Country: JP (occurrence: JP)
  Receive Date: 20130423
  Receipt Date: 20130423
  Transmission Date: 20140414
  Serious: Yes (Other)
  Sender: FDA-Public Use
  Company Number: JP-MYLANLABS-2013S1007985

PATIENT
  Age: 58 Year
  Sex: Female

DRUGS (2)
  1. TAMOXIFEN [Suspect]
     Indication: BREAST CANCER
     Dosage: 20 MG/DAY
     Route: 065
  2. TOREMIFENE [Suspect]
     Indication: BREAST CANCER
     Dosage: 80 MG/DAY
     Route: 065

REACTIONS (1)
  - Ovarian granulosa-theca cell tumour [Recovered/Resolved]
